FAERS Safety Report 4450248-5 (Version None)
Quarter: 2004Q3

REPORT INFORMATION
  Report Type: 
  Country: None (occurrence: None)
  Receive Date: 20040914
  Receipt Date: 20040831
  Transmission Date: 20050211
  Serious: Yes (Hospitalization)
  Sender: FDA-Public Use
  Company Number: 2004196371JP

PATIENT
  Age: 62 Year
  Sex: Female
  Weight: 44 kg

DRUGS (8)
  1. CABASER(CABERGOLINE) TABLET, 1-4MG [Suspect]
     Indication: PARKINSON'S DISEASE
     Dosage: SEE IMAGE
     Dates: end: 20031201
  2. CABASER(CABERGOLINE) TABLET, 1-4MG [Suspect]
     Indication: PARKINSON'S DISEASE
     Dosage: SEE IMAGE
     Dates: start: 20000501
  3. CABASER(CABERGOLINE) TABLET, 1-4MG [Suspect]
     Indication: PARKINSON'S DISEASE
     Dosage: SEE IMAGE
     Dates: start: 20010607
  4. PERGOLIDE MESYLATE [Suspect]
     Indication: PARKINSON'S DISEASE
     Dosage: 5 MG/DAY, ORAL
     Route: 048
     Dates: start: 19960101, end: 20000501
  5. MENESIT [Concomitant]
  6. SELEGILINE HYDROCHLORIDE [Concomitant]
  7. NEUROTROPIN (ORGAN LYSATE, STANDARDIZED) [Concomitant]
  8. GASLON (IRSOGLADINE MALEATE) [Concomitant]

REACTIONS (9)
  - AUTONOMIC NEUROPATHY [None]
  - CONSTIPATION [None]
  - DYSTONIA [None]
  - FEELING ABNORMAL [None]
  - HYPERTONIA [None]
  - MUSCULAR WEAKNESS [None]
  - MUSCULOSKELETAL DISCOMFORT [None]
  - ORTHOSTATIC HYPOTENSION [None]
  - VESTIBULAR NEURONITIS [None]
